FAERS Safety Report 8266866-2 (Version None)
Quarter: 2012Q2

REPORT INFORMATION
  Report Type: 
  Country: None (occurrence: None)
  Receive Date: 20120409
  Receipt Date: 20120329
  Transmission Date: 20120825
  Serious: No
  Sender: FDA-Public Use
  Company Number: US-BIOGENIDEC-2012BI011667

PATIENT
  Age: 37 Year
  Sex: Female

DRUGS (4)
  1. GABAPENTIN [Concomitant]
     Indication: HYPOAESTHESIA
     Dates: start: 20110901
  2. TYSABRI [Suspect]
     Indication: MULTIPLE SCLEROSIS
     Route: 042
     Dates: start: 20110930
  3. GABAPENTIN [Concomitant]
     Indication: MUSCULAR WEAKNESS
     Dates: start: 20110901
  4. GABAPENTIN [Concomitant]
     Indication: PAIN IN EXTREMITY
     Dates: start: 20110901

REACTIONS (11)
  - HYPOAESTHESIA [None]
  - ALOPECIA [None]
  - ERYTHEMA [None]
  - PAIN IN EXTREMITY [None]
  - RHINITIS [None]
  - MUSCULAR WEAKNESS [None]
  - INSOMNIA [None]
  - URINARY INCONTINENCE [None]
  - BLOOD GLUCOSE DECREASED [None]
  - ORAL INFECTION [None]
  - BURNING SENSATION [None]
